FAERS Safety Report 7598419-3 (Version None)
Quarter: 2011Q3

REPORT INFORMATION
  Report Type: 
  Country: None (occurrence: None)
  Receive Date: 20110708
  Receipt Date: 20110705
  Transmission Date: 20111222
  Serious: Yes (Death, Hospitalization)
  Sender: FDA-Public Use
  Company Number: US-ABBOTT-11P-163-0836133-00

PATIENT
  Sex: Male
  Weight: 124.85 kg

DRUGS (12)
  1. WARFARIN SODIUM [Concomitant]
     Indication: PRODUCT USED FOR UNKNOWN INDICATION
     Dates: end: 20110704
  2. HUMIRA [Suspect]
     Dates: start: 20110618, end: 20110618
  3. HYDROXYZINE [Concomitant]
     Indication: PSORIASIS
     Dates: end: 20110704
  4. NEXIUM [Concomitant]
     Indication: PRODUCT USED FOR UNKNOWN INDICATION
     Dates: end: 20110704
  5. TRICOR [Concomitant]
     Indication: PRODUCT USED FOR UNKNOWN INDICATION
     Dates: end: 20110704
  6. CARVEDILOL [Concomitant]
     Indication: PRODUCT USED FOR UNKNOWN INDICATION
     Dates: end: 20110704
  7. ASPIRIN [Concomitant]
     Indication: PRODUCT USED FOR UNKNOWN INDICATION
     Dates: end: 20110704
  8. NIASPAN [Concomitant]
     Indication: PRODUCT USED FOR UNKNOWN INDICATION
     Dates: end: 20110704
  9. LIPITOR [Concomitant]
     Indication: PRODUCT USED FOR UNKNOWN INDICATION
     Dates: end: 20110704
  10. HUMIRA [Suspect]
     Indication: PSORIASIS
     Dates: start: 20110611, end: 20110611
  11. HUMIRA [Suspect]
     Dates: start: 20110702, end: 20110702
  12. RAMIPRIL [Concomitant]
     Indication: PRODUCT USED FOR UNKNOWN INDICATION
     Dates: end: 20110704

REACTIONS (2)
  - CARDIAC ARREST [None]
  - CONVULSION [None]
